FAERS Safety Report 11871487 (Version 1)
Quarter: 2015Q4

REPORT INFORMATION
  Report Type: Spontaneous
  Country: US (occurrence: None)
  Receive Date: 20151224
  Receipt Date: 20151224
  Transmission Date: 20160305
  Serious: No
  Sender: FDA-Public Use
  Company Number: None

PATIENT
  Age: 52 Year
  Sex: Female

DRUGS (10)
  1. ARGATROBAN. [Concomitant]
     Active Substance: ARGATROBAN
  2. NYSTATIN OIL LIQUID [Concomitant]
  3. INSULIN GLARGINE [Suspect]
     Active Substance: INSULIN GLARGINE
     Indication: HYPERGLYCAEMIA
     Route: 058
     Dates: start: 20150831
  4. RANITIDINE [Concomitant]
     Active Substance: RANITIDINE\RANITIDINE HYDROCHLORIDE
  5. HYDROCORTISONE. [Concomitant]
     Active Substance: HYDROCORTISONE
  6. LOPERAMIDE [Concomitant]
     Active Substance: LOPERAMIDE
  7. DESMOPREASIN [Concomitant]
  8. ATORVASTATIN [Concomitant]
     Active Substance: ATORVASTATIN
  9. LEVETIRACETAM. [Concomitant]
     Active Substance: LEVETIRACETAM
  10. AMANTADINE [Concomitant]
     Active Substance: AMANTADINE

REACTIONS (3)
  - Brain mass [None]
  - Hypoglycaemia [None]
  - Headache [None]

NARRATIVE: CASE EVENT DATE: 20151002
